FAERS Safety Report 10142586 (Version 1)
Quarter: 2014Q2

REPORT INFORMATION
  Report Type: Spontaneous
  Country: US (occurrence: None)
  Receive Date: 20140428
  Receipt Date: 20140428
  Transmission Date: 20141212
  Serious: Yes (Other)
  Sender: FDA-Public Use
  Company Number: None

PATIENT
  Age: 90 Year
  Sex: Male
  Weight: 77.9 kg

DRUGS (2)
  1. MIRTAZAPINE [Suspect]
     Indication: BIPOLAR DISORDER
     Route: 048
     Dates: start: 20131213, end: 20140417
  2. MIRTAZAPINE [Suspect]
     Indication: MANIA
     Route: 048
     Dates: start: 20131213, end: 20140417

REACTIONS (1)
  - Convulsion [None]
